FAERS Safety Report 9270231 (Version 1)
Quarter: 2013Q2

REPORT INFORMATION
  Report Type: Spontaneous
  Country: IT (occurrence: IT)
  Receive Date: 20130503
  Receipt Date: 20130503
  Transmission Date: 20140414
  Serious: Yes (Hospitalization)
  Sender: FDA-Public Use
  Company Number: IT-GLAXOSMITHKLINE-B0889092A

PATIENT
  Age: 3 Year
  Sex: Female

DRUGS (4)
  1. ZOVIRAX [Suspect]
     Indication: STOMATITIS
     Dosage: 3ML PER DAY
     Route: 048
     Dates: start: 20130421, end: 20130422
  2. TINSET [Concomitant]
     Dosage: 9DROP PER DAY
     Route: 048
     Dates: start: 20130420, end: 20130420
  3. ZIMOX [Concomitant]
     Dates: start: 20130420, end: 20130420
  4. TACHIPIRINA [Concomitant]
     Dates: start: 20130420, end: 20130420

REACTIONS (2)
  - Staring [Recovered/Resolved]
  - Tremor [Recovered/Resolved]
